FAERS Safety Report 6396036-4 (Version None)
Quarter: 2009Q4

REPORT INFORMATION
  Report Type: 
  Country: None (occurrence: None)
  Receive Date: 20091009
  Receipt Date: 20090925
  Transmission Date: 20100525
  Serious: Yes (Other)
  Sender: FDA-Public Use
  Company Number: US-JNJCH-2009026756

PATIENT
  Age: 3 Year
  Sex: Male
  Weight: 14.5 kg

DRUGS (3)
  1. BENADRYL [Suspect]
     Indication: MULTIPLE ALLERGIES
     Dosage: TEXT:5 ML, 1 IN 1 HOUR OF SLEEP
     Route: 048
  2. TYLENOL (CAPLET) [Suspect]
     Indication: RHINORRHOEA
     Dosage: TEXT:160 MG, 2 IN 1 DAY
     Route: 048
  3. CLARITIN [Suspect]
     Indication: MULTIPLE ALLERGIES
     Dosage: TEXT:5 ML, 1 IN 1 HOUR OF SLEEP
     Route: 048

REACTIONS (5)
  - COUGH [None]
  - DRUG INEFFECTIVE [None]
  - PRODUCT QUALITY ISSUE [None]
  - RHINORRHOEA [None]
  - TRANSMISSION OF AN INFECTIOUS AGENT VIA A MEDICINAL PRODUCT [None]
